FAERS Safety Report 5999128-4 (Version None)
Quarter: 2008Q4

REPORT INFORMATION
  Report Type: 
  Country: None (occurrence: None)
  Receive Date: 20081211
  Receipt Date: 20081125
  Transmission Date: 20090506
  Serious: Yes (Hospitalization)
  Sender: FDA-Public Use
  Company Number: KV200800532

PATIENT
  Age: 78 Year
  Sex: Female
  Weight: 59.9 kg

DRUGS (6)
  1. PROPAFENONE HYDROCHLORIDE  TABLET, 150MG [Suspect]
     Indication: ATRIAL FIBRILLATION
     Dosage: 150 MG, QD, ORAL
     Route: 048
     Dates: start: 20080101, end: 20080713
  2. COUMADIN [Concomitant]
  3. PRILOSEC /00661201/ (OMEPRAZOLE) [Concomitant]
  4. METFORMIN HCL [Concomitant]
  5. METOPROLOL TARTRATE [Concomitant]
  6. PREMARIN [Concomitant]

REACTIONS (3)
  - BLOOD PRESSURE DECREASED [None]
  - PRODUCT QUALITY ISSUE [None]
  - SYNCOPE [None]
